FAERS Safety Report 18389556 (Version 2)
Quarter: 2020Q4

REPORT INFORMATION
  Report Type: Spontaneous
  Country: US (occurrence: US)
  Receive Date: 20201015
  Receipt Date: 20201021
  Transmission Date: 20210114
  Serious: Yes (Life-Threatening, Hospitalization)
  Sender: FDA-Public Use
  Company Number: US-TEVA-2020-US-1837466

PATIENT
  Age: 38 Year
  Sex: Female

DRUGS (4)
  1. MEROPENEM. [Concomitant]
     Active Substance: MEROPENEM
     Indication: EVIDENCE BASED TREATMENT
     Dosage: 3 GRAM DAILY;
     Route: 042
  2. PREDNISONE. [Suspect]
     Active Substance: PREDNISONE
     Indication: IMMUNOSUPPRESSANT DRUG THERAPY
     Dosage: 40 MILLIGRAM DAILY; FOR 2 WEEKS LATER SLOWLY TAPERED
     Route: 048
  3. VANCOMYCIN [Concomitant]
     Active Substance: VANCOMYCIN
     Indication: EVIDENCE BASED TREATMENT
     Dosage: 2 GRAM DAILY;
     Route: 042
  4. MESALAMINE. [Concomitant]
     Active Substance: MESALAMINE
     Indication: DRUG THERAPY
     Dosage: 4 GRAM DAILY;
     Route: 065

REACTIONS (1)
  - Histoplasmosis disseminated [Recovered/Resolved]
